FAERS Safety Report 12384847 (Version 1)
Quarter: 2016Q2

REPORT INFORMATION
  Report Type: Report from Study
  Country: AR (occurrence: AR)
  Receive Date: 20160519
  Receipt Date: 20160519
  Transmission Date: 20160815
  Serious: Yes (Other)
  Sender: FDA-Public Use
  Company Number: PHHY2016AR068006

PATIENT
  Sex: Female

DRUGS (4)
  1. EXFORGE [Suspect]
     Active Substance: AMLODIPINE BESYLATE\VALSARTAN
     Indication: PRODUCT USED FOR UNKNOWN INDICATION
     Dosage: 1 DF (AMLODIPINE 5 AND VALSARTAN 160), QD
     Route: 065
  2. RASILEZ [Suspect]
     Active Substance: ALISKIREN
     Indication: PRODUCT USED FOR UNKNOWN INDICATION
     Dosage: UNK UNK, QD
     Route: 065
  3. LUCENTIS [Suspect]
     Active Substance: RANIBIZUMAB
     Indication: PRODUCT USED FOR UNKNOWN INDICATION
     Dosage: UNK, QD
     Route: 065
  4. GALVUS MET [Suspect]
     Active Substance: METFORMIN HYDROCHLORIDE\VILDAGLIPTIN
     Indication: HYPERGLYCAEMIA
     Dosage: UNK UNK, BID
     Route: 065

REACTIONS (4)
  - Hypoglycaemia [Unknown]
  - Hyperhidrosis [Unknown]
  - Weight decreased [Unknown]
  - Glycosylated haemoglobin decreased [Unknown]
